FAERS Safety Report 14300311 (Version 2)
Quarter: 2018Q1

REPORT INFORMATION
  Report Type: Spontaneous
  Country: US (occurrence: US)
  Receive Date: 20171219
  Receipt Date: 20180308
  Transmission Date: 20180509
  Serious: No
  Sender: FDA-Public Use
  Company Number: US-PFIZER INC-2017539045

PATIENT
  Age: 76 Year
  Sex: Male

DRUGS (1)
  1. LATANOPROST. [Suspect]
     Active Substance: LATANOPROST
     Dosage: 1 GTT, 1X/DAY (ONE DROP NIGHTLY BEFORE BED IN MY LEFT EYE)
     Route: 047

REACTIONS (3)
  - Pruritus [Unknown]
  - Burning sensation [Unknown]
  - Irritability [Unknown]
